FAERS Safety Report 18578900 (Version 1)
Quarter: 2020Q4

REPORT INFORMATION
  Report Type: Spontaneous
  Country: GB (occurrence: GB)
  Receive Date: 20201204
  Receipt Date: 20201204
  Transmission Date: 20210114
  Serious: Yes (Disabling)
  Sender: FDA-Public Use
  Company Number: GB-009507513-2012GBR001114

PATIENT
  Age: 74 Year
  Sex: Female
  Weight: 84 kg

DRUGS (5)
  1. ALENDRONATE SODIUM. [Suspect]
     Active Substance: ALENDRONATE SODIUM
     Dosage: 70 MILLIGRAM, QW,ON THE SAME DAY EACH WEEK
     Dates: start: 20201104
  2. CODEINE PHOSPHATE [Concomitant]
     Active Substance: CODEINE PHOSPHATE
     Indication: PAIN
     Dosage: UNK,1-2 FOUR TIMES DAILYAS REQUIRED. CAN ...
     Dates: start: 20200928, end: 20201005
  3. AMITRIPTYLINE HYDROCHLORIDE. [Concomitant]
     Active Substance: AMITRIPTYLINE HYDROCHLORIDE
     Dosage: 2 DOSAGE FORM, QD,TO BE TAKEN EACH NIGHT. CAN CAUSE SOME S...
     Dates: start: 20200316
  4. ACETAMINOPHEN. [Concomitant]
     Active Substance: ACETAMINOPHEN
     Dosage: 8 DOSAGE FORM, QD,WHEN REQUIRED FOR PA...
     Dates: start: 20200417
  5. PREDNISOLONE. [Concomitant]
     Active Substance: PREDNISOLONE
     Dosage: 3 DOSAGE FORM, QD
     Dates: start: 20201104

REACTIONS (2)
  - Yawning [Unknown]
  - Dysphagia [Unknown]

NARRATIVE: CASE EVENT DATE: 20201109
